FAERS Safety Report 19423756 (Version 19)
Quarter: 2023Q4

REPORT INFORMATION
  Report Type: Spontaneous
  Country: US (occurrence: US)
  Receive Date: 20210616
  Receipt Date: 20231030
  Transmission Date: 20240109
  Serious: No
  Sender: FDA-Public Use
  Company Number: US-PFIZER INC-2020492058

PATIENT
  Age: 56 Year
  Sex: Male
  Weight: 135.3 kg

DRUGS (8)
  1. DEPO-ESTRADIOL [Suspect]
     Active Substance: ESTRADIOL CYPIONATE
     Indication: Hormone therapy
     Dosage: UNK
     Dates: start: 201907
  2. DEPO-ESTRADIOL [Suspect]
     Active Substance: ESTRADIOL CYPIONATE
     Indication: Gender dysphoria
     Dosage: UNK, WEEKLY (0.8 A WEEK)
  3. DEPO-ESTRADIOL [Suspect]
     Active Substance: ESTRADIOL CYPIONATE
     Dosage: 4 MG, WEEKLY
     Route: 030
  4. DEPO-ESTRADIOL [Suspect]
     Active Substance: ESTRADIOL CYPIONATE
     Dosage: 0.8 ML, WEEKLY
     Route: 030
  5. DEPO-ESTRADIOL [Suspect]
     Active Substance: ESTRADIOL CYPIONATE
     Dosage: 0.4 ML, 2X/WEEK
     Route: 030
  6. DEPO-ESTRADIOL [Suspect]
     Active Substance: ESTRADIOL CYPIONATE
     Dosage: 0.8MG/ML, ONE INJECTION EVERY 7 DAYS
  7. DEPO-ESTRADIOL [Suspect]
     Active Substance: ESTRADIOL CYPIONATE
     Dosage: INJECT 0.8 ML (4 MG) INTO THE MUSCLE EVERY 7 DAYS
     Route: 030
  8. DEPO-ESTRADIOL [Suspect]
     Active Substance: ESTRADIOL CYPIONATE
     Dosage: INJECT 0.8 ML (4 MG) INTO THE MUSCLE EVERY 7 DAYS
     Route: 030
     Dates: start: 20230830

REACTIONS (6)
  - Memory impairment [Unknown]
  - Dyspnoea [Unknown]
  - Malaise [Unknown]
  - Headache [Unknown]
  - Off label use [Unknown]
  - Product prescribing error [Unknown]

NARRATIVE: CASE EVENT DATE: 20190701
